FAERS Safety Report 5398414-9 (Version None)
Quarter: 2007Q3

REPORT INFORMATION
  Report Type: 
  Country: None (occurrence: None)
  Receive Date: 20070726
  Receipt Date: 20070315
  Transmission Date: 20080115
  Serious: No
  Sender: FDA-Public Use
  Company Number: US-AMGEN-KDL215252

PATIENT
  Sex: Female
  Weight: 84.3 kg

DRUGS (3)
  1. PROCRIT [Suspect]
     Indication: ANAEMIA OF MALIGNANT DISEASE
     Route: 058
     Dates: start: 20070308
  2. DOXORUBICIN HYDROCHLORIDE [Concomitant]
  3. CYTARABINE [Concomitant]

REACTIONS (1)
  - DRUG INEFFECTIVE [None]
